FAERS Safety Report 6997953-4 (Version None)
Quarter: 2010Q3

REPORT INFORMATION
  Report Type: 
  Country: None (occurrence: None)
  Receive Date: 20100920
  Receipt Date: 20100913
  Transmission Date: 20110219
  Serious: Yes (Life-Threatening, Hospitalization)
  Sender: FDA-Public Use
  Company Number: FR-ELI_LILLY_AND_COMPANY-FR201002005886

PATIENT
  Sex: Female
  Weight: 80 kg

DRUGS (13)
  1. BYETTA [Suspect]
     Indication: TYPE 2 DIABETES MELLITUS
     Dosage: 5 UG, 2/D
     Route: 058
     Dates: start: 20091201, end: 20100101
  2. BYETTA [Suspect]
     Dosage: 10 UG, 2/D
     Route: 058
     Dates: start: 20100116, end: 20100118
  3. BYETTA [Suspect]
     Dosage: 5 UG, 2/D
     Route: 058
     Dates: start: 20100118, end: 20100120
  4. GLUCOPHAGE [Concomitant]
     Indication: TYPE 2 DIABETES MELLITUS
     Dosage: UNK, UNKNOWN
  5. ANTIHYPERTENSIVES [Concomitant]
     Indication: HYPERTENSION
     Dosage: UNK, UNKNOWN
  6. ANTIHYPERTENSIVES [Concomitant]
     Dosage: UNK, UNKNOWN
     Dates: start: 20100126
  7. DIAMICRON [Concomitant]
  8. LERCANIDIPINE [Concomitant]
  9. BISOPROLOL FUMARATE [Concomitant]
     Dosage: 5 MG, DAILY (1/D)
  10. LANZOR [Concomitant]
  11. LEVOTHYROXINE SODIUM [Concomitant]
     Indication: HYPOTHYROIDISM
     Dosage: 87.5 UG, DAILY (1/D)
  12. PIOGLITAZONE [Concomitant]
  13. NEXIUM [Concomitant]
     Dosage: 20 MG, DAILY (1/D)

REACTIONS (12)
  - ABDOMINAL PAIN [None]
  - ANAEMIA [None]
  - COMA [None]
  - DEHYDRATION [None]
  - DIARRHOEA [None]
  - GLYCOSYLATED HAEMOGLOBIN INCREASED [None]
  - LACTIC ACIDOSIS [None]
  - NAUSEA [None]
  - RENAL FAILURE ACUTE [None]
  - RESPIRATORY DISTRESS [None]
  - SHOCK [None]
  - VOMITING [None]
